FAERS Safety Report 15726147 (Version 1)
Quarter: 2018Q4

REPORT INFORMATION
  Report Type: Spontaneous
  Country: US (occurrence: US)
  Receive Date: 20181216
  Receipt Date: 20181216
  Transmission Date: 20190205
  Serious: No
  Sender: FDA-Public Use
  Company Number: US-SUPERNUS PHARMACEUTICALS, INC.-2018SUP00166

PATIENT
  Age: 27 Year
  Sex: Male

DRUGS (4)
  1. TROKENDI XR [Suspect]
     Active Substance: TOPIRAMATE
     Indication: CLUSTER HEADACHE
     Dosage: 200 MG, 1X/DAY
     Route: 048
     Dates: start: 201803
  2. TROKENDI XR [Suspect]
     Active Substance: TOPIRAMATE
     Indication: CLUSTER HEADACHE
     Dosage: 50 MG, 1X/DAY
     Route: 048
     Dates: start: 201708
  3. SERTRALINE [Concomitant]
     Active Substance: SERTRALINE HYDROCHLORIDE
  4. TROKENDI XR [Suspect]
     Active Substance: TOPIRAMATE
     Dosage: 100 MG, 1X/DAY
     Route: 048
     Dates: start: 2017, end: 201803

REACTIONS (3)
  - Off label use [Not Recovered/Not Resolved]
  - Pruritus [Unknown]
  - Rash [Unknown]

NARRATIVE: CASE EVENT DATE: 201702
